FAERS Safety Report 25892323 (Version 2)
Quarter: 2025Q4

REPORT INFORMATION
  Report Type: Spontaneous
  Country: US (occurrence: US)
  Receive Date: 20251007
  Receipt Date: 20251029
  Transmission Date: 20260117
  Serious: Yes (Other)
  Sender: AMERICAN REGENT
  Company Number: US-AMERICAN REGENT INC-2025003696

PATIENT
  Age: 73 Year
  Sex: Male
  Weight: 85.73 kg

DRUGS (1)
  1. VENOFER [Suspect]
     Active Substance: IRON SUCROSE
     Indication: Iron deficiency anaemia
     Dosage: 500 MILLIGRAM; ALSO REPORTED AS 300 MG
     Route: 042
     Dates: start: 20250813, end: 20250813

REACTIONS (7)
  - Tremor [Recovered/Resolved]
  - Pharyngeal oedema [Unknown]
  - Confusional state [Unknown]
  - Myalgia [Recovered/Resolved]
  - Asthenia [Recovered/Resolved]
  - Dizziness [Unknown]
  - Dyspnoea [Unknown]

NARRATIVE: CASE EVENT DATE: 20250813
